FAERS Safety Report 4453648-2 (Version None)
Quarter: 2004Q3

REPORT INFORMATION
  Report Type: 
  Country: None (occurrence: None)
  Receive Date: 20040920
  Receipt Date: 20040908
  Transmission Date: 20050211
  Serious: Yes (Hospitalization)
  Sender: FDA-Public Use
  Company Number: FR-BRISTOL-MYERS SQUIBB COMPANY-12695714

PATIENT
  Age: 51 Year
  Sex: Male

DRUGS (10)
  1. BRISTOPEN INJ 1 G [Suspect]
     Indication: SEPSIS
     Dosage: REDUCED TO 4 GRAMS DAILY 08 AND 09-JUN-2004
     Dates: start: 20040528, end: 20040609
  2. OFLOCET [Suspect]
     Indication: SEPSIS
     Route: 048
     Dates: start: 20040603, end: 20040614
  3. ZESTORETIC [Concomitant]
     Dosage: DISCONTINUED 12-JUN-2004 RESTARTED 27-JUN-2004
  4. ATENOLOL [Concomitant]
  5. AMAREL [Concomitant]
     Dosage: DISCONTINUED 12-JUN-2004 RESTARTED 27-JUN-2004
  6. GLUCOPHAGE [Concomitant]
     Dosage: DISCONTINUED 12-JUN-2004 RESTARTED 27-JUN-2004
  7. TAHOR [Concomitant]
  8. VANCOMYCIN [Concomitant]
     Dates: start: 20040527
  9. GENTAMYCIN SULFATE [Concomitant]
     Dates: start: 20040527
  10. RIFAMPICIN [Concomitant]
     Dates: start: 20040528, end: 20040603

REACTIONS (2)
  - NEPHROPATHY [None]
  - RENAL FAILURE ACUTE [None]
